FAERS Safety Report 7830512-X (Version None)
Quarter: 2011Q4

REPORT INFORMATION
  Report Type: 
  Country: None (occurrence: None)
  Receive Date: 20111021
  Receipt Date: 20111008
  Transmission Date: 20120403
  Serious: Yes (Other)
  Sender: FDA-Public Use
  Company Number: NL-ABBOTT-11P-114-0862320-00

PATIENT
  Age: 69 Year
  Sex: Female
  Weight: 84 kg

DRUGS (10)
  1. FLUCONAZOLE [Suspect]
     Indication: BONE ABSCESS
     Dosage: MAXIMUM OF 100 MG INFUSED
     Route: 042
  2. PIPERACILLIN AND TAZOBACTAM [Concomitant]
     Indication: PRODUCT USED FOR UNKNOWN INDICATION
  3. ESOMEPRAZOLE SODIUM [Concomitant]
     Indication: PRODUCT USED FOR UNKNOWN INDICATION
  4. SEVOFLURANE [Suspect]
     Indication: MAINTENANCE OF ANAESTHESIA
     Dosage: 1.5-2% END EXPIRED
  5. PROPOFOL [Concomitant]
     Indication: INDUCTION OF ANAESTHESIA
  6. AIR [Concomitant]
     Indication: MAINTENANCE OF ANAESTHESIA
  7. ACETAMINOPHEN [Concomitant]
     Indication: PRODUCT USED FOR UNKNOWN INDICATION
     Route: 048
  8. SUFENTANIL CITRATE [Concomitant]
     Indication: INDUCTION OF ANAESTHESIA
  9. AMLODIPINE [Concomitant]
     Indication: PRODUCT USED FOR UNKNOWN INDICATION
  10. OXYGEN [Concomitant]
     Indication: MAINTENANCE OF ANAESTHESIA

REACTIONS (2)
  - TORSADE DE POINTES [None]
  - LONG QT SYNDROME [None]
